FAERS Safety Report 16781687 (Version 9)
Quarter: 2021Q3

REPORT INFORMATION
  Report Type: Spontaneous
  Country: FR (occurrence: FR)
  Receive Date: 20190906
  Receipt Date: 20210817
  Transmission Date: 20211014
  Serious: Yes (Hospitalization, Other)
  Sender: FDA-Public Use
  Company Number: FR-MYLANLABS-2019M1083176

PATIENT
  Age: 69 Year
  Sex: Female
  Weight: 63 kg

DRUGS (46)
  1. OESCLIM [Suspect]
     Active Substance: ESTRADIOL
     Indication: HORMONE REPLACEMENT THERAPY
  2. METHOTREXATE. [Suspect]
     Active Substance: METHOTREXATE
     Dosage: UNK
     Route: 065
     Dates: start: 1995, end: 2001
  3. RITUXIMAB. [Suspect]
     Active Substance: RITUXIMAB
     Indication: RHEUMATOID ARTHRITIS
     Dosage: 1 GRAM, BIWEEKLY, INFUSION
     Route: 050
     Dates: start: 201007
  4. OROCAL                             /07357001/ [Concomitant]
     Active Substance: CALCIUM CARBONATE
     Indication: PRODUCT USED FOR UNKNOWN INDICATION
     Dosage: 1 DOSAGE FORM, QD
  5. VITAMIN D3 [Concomitant]
     Active Substance: CHOLECALCIFEROL
     Indication: VITAMIN SUPPLEMENTATION
  6. INFLIXIMAB [Concomitant]
     Active Substance: INFLIXIMAB
     Dosage: UNK
  7. PARACETAMOL [Suspect]
     Active Substance: ACETAMINOPHEN
     Dosage: 1 DOSAGE FORM, QD
     Route: 048
  8. PREDNISOLONE. [Suspect]
     Active Substance: PREDNISOLONE
     Indication: RHEUMATOID ARTHRITIS
     Dosage: 5 MILLIGRAM, QD
     Route: 065
     Dates: start: 2006
  9. OROCAL D3 [Suspect]
     Active Substance: CALCIUM CARBONATE\CHOLECALCIFEROL
     Indication: PRODUCT USED FOR UNKNOWN INDICATION
     Dosage: 1 DOSAGE FORM, QD
  10. INFLIXIMAB [Suspect]
     Active Substance: INFLIXIMAB
     Indication: RHEUMATOID ARTHRITIS
     Dosage: UNK
     Route: 065
     Dates: start: 2008, end: 2009
  11. OROCAL                             /07357001/ [Concomitant]
     Active Substance: CALCIUM CARBONATE
     Dosage: UNK UNK, QD
  12. ZELITREX [Concomitant]
     Active Substance: VALACYCLOVIR HYDROCHLORIDE
     Dosage: 500 MILLIGRAM, BID
     Route: 048
     Dates: start: 20100820, end: 20100827
  13. TAREG [Concomitant]
     Active Substance: VALSARTAN
     Indication: HYPERTENSION
     Dosage: 80 MILLIGRAM, QD
     Route: 048
  14. PARACETAMOL [Suspect]
     Active Substance: ACETAMINOPHEN
     Indication: RHEUMATOID ARTHRITIS
     Dosage: UNK, TID
  15. METHOTREXATE. [Suspect]
     Active Substance: METHOTREXATE
     Indication: RHEUMATOID ARTHRITIS
     Dosage: UNK
     Route: 065
  16. ACTONEL [Suspect]
     Active Substance: RISEDRONATE SODIUM
     Indication: OSTEOPOROSIS
     Dosage: 1 DOSAGE FORM, QD
     Route: 048
     Dates: start: 2006, end: 2009
  17. MABTHERA [Suspect]
     Active Substance: RITUXIMAB
     Indication: POLYARTHRITIS
     Dosage: UNK
     Route: 042
  18. RISEDRONATE [Suspect]
     Active Substance: RISEDRONATE SODIUM
     Indication: OSTEOPOROSIS PROPHYLAXIS
     Dosage: 5 MILLIGRAM, QD
     Route: 048
     Dates: start: 200611, end: 200801
  19. COLECALCIFEROL [Suspect]
     Active Substance: CHOLECALCIFEROL
     Indication: PRODUCT USED FOR UNKNOWN INDICATION
     Dosage: 0.25 [IU]/1 (STRENGTH: 25IU/1/MG)
  20. OFLOXACIN                          /00731802/ [Concomitant]
     Indication: PRODUCT USED FOR UNKNOWN INDICATION
     Dosage: 400 MILLIGRAM, QD
     Route: 048
     Dates: start: 20100820, end: 20100823
  21. PARACETAMOL [Suspect]
     Active Substance: ACETAMINOPHEN
     Dosage: UNK, QD
  22. CORTANCYL [Suspect]
     Active Substance: PREDNISONE
     Indication: RHEUMATOID ARTHRITIS
     Dosage: 1 DOSAGE FORM, QD
     Route: 048
  23. VITAMIN D3 [Suspect]
     Active Substance: CHOLECALCIFEROL
     Indication: PRODUCT USED FOR UNKNOWN INDICATION
     Dosage: 25IU/1/MG
  24. OFLOCET                            /00731802/ [Concomitant]
     Active Substance: OFLOXACIN
     Dosage: UNK
     Route: 048
     Dates: start: 20100820, end: 20100823
  25. CALCIUM CARBONATE W/COLECALCIFEROL [Concomitant]
     Active Substance: CALCIUM CARBONATE\CHOLECALCIFEROL
     Dosage: UNK
  26. VALSARTAN. [Concomitant]
     Active Substance: VALSARTAN
     Indication: HYPERTENSION
     Dosage: 80 MILLIGRAM, QD
     Route: 048
  27. DAFALGAN [Concomitant]
     Active Substance: ACETAMINOPHEN
     Indication: RHEUMATOID ARTHRITIS
     Dosage: UNK UNK, Q8H (UNK UNK,TID)
     Route: 048
  28. VALSARTAN. [Suspect]
     Active Substance: VALSARTAN
     Indication: HYPERTENSION
     Dosage: 80 MILLIGRAM, QD
     Route: 048
  29. LEFLUNOMIDE. [Suspect]
     Active Substance: LEFLUNOMIDE
     Indication: RHEUMATOID ARTHRITIS
     Dosage: 20 MILLIGRAM, QD
     Route: 065
     Dates: start: 2006
  30. CORTANCYL [Suspect]
     Active Substance: PREDNISONE
     Indication: POLYARTHRITIS
     Dosage: 5 MILLIGRAM, QD
     Route: 048
  31. MABTHERA [Suspect]
     Active Substance: RITUXIMAB
     Indication: RHEUMATOID ARTHRITIS
     Dosage: 1000 MILLIGRAM, Q2W
     Route: 042
     Dates: end: 20100722
  32. MABTHERA [Suspect]
     Active Substance: RITUXIMAB
     Dosage: UNK UNK, TOTAL (UNK UNK, 1X)
     Route: 042
  33. CALCIUM [Concomitant]
     Active Substance: CALCIUM
     Indication: OSTEOPOROSIS PROPHYLAXIS
     Dosage: 500 MILLIGRAM, QD
     Route: 065
  34. PARACETAMOL [Suspect]
     Active Substance: ACETAMINOPHEN
     Indication: PRODUCT USED FOR UNKNOWN INDICATION
     Dosage: 3 DOSAGE FORM, QD
     Route: 048
  35. OESCLIM [Suspect]
     Active Substance: ESTRADIOL
     Indication: OESTROGEN REPLACEMENT THERAPY
     Dosage: 25 MCG, QOW(25 UG/24 HRS) ,1.775 MICROGRAM DAILY;25 UG, EVERY 2WK
     Route: 062
  36. ACTONEL [Suspect]
     Active Substance: RISEDRONATE SODIUM
     Dosage: UNK DOSAGE FORM, QD
     Route: 048
     Dates: start: 2006, end: 2009
  37. ARAVA [Suspect]
     Active Substance: LEFLUNOMIDE
     Indication: POLYARTHRITIS
     Dosage: 20 MILLIGRAM, QD
     Route: 048
  38. ARAVA [Suspect]
     Active Substance: LEFLUNOMIDE
     Indication: RHEUMATOID ARTHRITIS
     Dosage: 1 DOSAGE FORM, QD
     Route: 048
  39. VALACICLOVIR [Concomitant]
     Active Substance: VALACYCLOVIR HYDROCHLORIDE
     Indication: ORAL HERPES
     Dosage: 500 MILLIGRAM, BID
     Route: 048
     Dates: start: 20100820
  40. CALCIUM [Concomitant]
     Active Substance: CALCIUM
     Indication: VITAMIN SUPPLEMENTATION
  41. PARACETAMOL [Suspect]
     Active Substance: ACETAMINOPHEN
     Dosage: 3 DOSAGE FORM, QD
     Route: 048
  42. VALSARTAN. [Suspect]
     Active Substance: VALSARTAN
     Dosage: 80 MILLIGRAM
     Route: 048
  43. OFLOCET                            /00731802/ [Concomitant]
     Active Substance: OFLOXACIN
     Dosage: 800 MILLIGRAM, QD
     Route: 048
     Dates: start: 20100820, end: 20100823
  44. ZELITREX [Concomitant]
     Active Substance: VALACYCLOVIR HYDROCHLORIDE
     Indication: ORAL HERPES
     Dosage: 500 MILLIGRAM, QD
     Route: 048
     Dates: start: 20100820, end: 20100827
  45. HYDROXYCHLOROQUINE [Concomitant]
     Active Substance: HYDROXYCHLOROQUINE
     Indication: PRODUCT USED FOR UNKNOWN INDICATION
     Dosage: UNK
  46. VITAMIN D3 [Concomitant]
     Active Substance: CHOLECALCIFEROL
     Indication: OSTEOPOROSIS PROPHYLAXIS
     Dosage: 800 INTERNATIONAL UNIT, QD, AT THE INITIAL ASSESSMENT
     Route: 065

REACTIONS (11)
  - Osteonecrosis of jaw [Unknown]
  - Herpes simplex [Unknown]
  - Gastroenteritis [Unknown]
  - Periodontal disease [Unknown]
  - Necrosis [Unknown]
  - Gingival ulceration [Unknown]
  - Periodontitis [Unknown]
  - Pain in jaw [Unknown]
  - Acute kidney injury [Unknown]
  - Oral pain [Unknown]
  - Oral herpes [Recovered/Resolved]

NARRATIVE: CASE EVENT DATE: 20100722
